FAERS Safety Report 18648340 (Version 1)
Quarter: 2020Q4

REPORT INFORMATION
  Report Type: Spontaneous
  Country: US (occurrence: US)
  Receive Date: 20201222
  Receipt Date: 20201222
  Transmission Date: 20210114
  Serious: Yes (Hospitalization)
  Sender: FDA-Public Use
  Company Number: US-ELI_LILLY_AND_COMPANY-US202012007588

PATIENT
  Sex: Female

DRUGS (2)
  1. BAMLANIVIMAB 700MG [Suspect]
     Active Substance: BAMLANIVIMAB
     Indication: COVID-19
     Dosage: 700 MG, SINGLE
     Route: 042
     Dates: start: 20201211, end: 20201211
  2. OXYGEN. [Concomitant]
     Active Substance: OXYGEN
     Indication: COUGH
     Dosage: 2 L, UNKNOWN (NASAL CANULE)
     Route: 045

REACTIONS (2)
  - Oxygen saturation decreased [Unknown]
  - Condition aggravated [Unknown]
